FAERS Safety Report 4579610-7 (Version None)
Quarter: 2005Q1

REPORT INFORMATION
  Report Type: 
  Country: None (occurrence: None)
  Receive Date: 20050210
  Receipt Date: 20050126
  Transmission Date: 20050727
  Serious: Yes (Death)
  Sender: FDA-Public Use
  Company Number: 2004AL000507

PATIENT
  Age: 51 Year
  Sex: Female

DRUGS (6)
  1. PROPOXYPHENE HYDROCHLORIDE W/ACETAMINOPHEN TAB [Suspect]
     Dosage: PO
     Route: 048
  2. ALPRAZOLAM [Suspect]
     Dosage: PO
     Route: 048
  3. ZOLPIDEM TARTRATE [Suspect]
     Dosage: PO
     Route: 048
  4. ETHANOL [Suspect]
     Dosage: PO
     Route: 048
  5. BUPROPION HCL [Suspect]
     Dosage: PO
     Route: 048
  6. QUETIAPINE FUMARATE [Suspect]
     Dosage: PO
     Route: 048

REACTIONS (32)
  - AGGRESSION [None]
  - ALANINE AMINOTRANSFERASE INCREASED [None]
  - ASPARTATE AMINOTRANSFERASE INCREASED [None]
  - ATRIOVENTRICULAR BLOCK FIRST DEGREE [None]
  - BASE EXCESS NEGATIVE [None]
  - BILIRUBIN CONJUGATED INCREASED [None]
  - BLOOD ALBUMIN DECREASED [None]
  - BLOOD ALKALINE PHOSPHATASE INCREASED [None]
  - BLOOD BICARBONATE DECREASED [None]
  - BLOOD BILIRUBIN INCREASED [None]
  - BLOOD CHLORIDE INCREASED [None]
  - BLOOD CREATINE PHOSPHOKINASE INCREASED [None]
  - BLOOD GLUCOSE INCREASED [None]
  - BLOOD LACTATE DEHYDROGENASE INCREASED [None]
  - BLOOD PH DECREASED [None]
  - BLOOD PRESSURE DECREASED [None]
  - BUNDLE BRANCH BLOCK RIGHT [None]
  - COMPLETED SUICIDE [None]
  - ELECTROCARDIOGRAM PR PROLONGATION [None]
  - ELECTROCARDIOGRAM QRS COMPLEX PROLONGED [None]
  - GENERALISED OEDEMA [None]
  - GRAND MAL CONVULSION [None]
  - HEPATIC STEATOSIS [None]
  - MULTIPLE DRUG OVERDOSE [None]
  - OXYGEN SATURATION DECREASED [None]
  - PCO2 DECREASED [None]
  - PCO2 INCREASED [None]
  - PO2 DECREASED [None]
  - PYREXIA [None]
  - QRS AXIS ABNORMAL [None]
  - SPLENOMEGALY [None]
  - URINE OUTPUT DECREASED [None]
